FAERS Safety Report 7672252-6 (Version None)
Quarter: 2011Q3

REPORT INFORMATION
  Report Type: 
  Country: None (occurrence: None)
  Receive Date: 20110809
  Receipt Date: 20110727
  Transmission Date: 20111222
  Serious: Yes (Life-Threatening, Hospitalization, Other)
  Sender: FDA-Public Use
  Company Number: US-ELI_LILLY_AND_COMPANY-US201105008285

PATIENT
  Age: 77 Year
  Sex: Male

DRUGS (1)
  1. FORTEO [Suspect]
     Indication: OSTEOPOROSIS
     Dosage: 20 UG, QD
     Route: 065
     Dates: start: 20110421, end: 20110516

REACTIONS (10)
  - BUNDLE BRANCH BLOCK LEFT [None]
  - LEFT VENTRICULAR HYPERTROPHY [None]
  - PSEUDOMONAS INFECTION [None]
  - CORONARY ARTERY DISEASE [None]
  - RESPIRATORY ARREST [None]
  - SYNCOPE [None]
  - ISCHAEMIC CARDIOMYOPATHY [None]
  - EJECTION FRACTION [None]
  - INTRACARDIAC THROMBUS [None]
  - FALL [None]
